FAERS Safety Report 23859826 (Version 2)
Quarter: 2024Q2

REPORT INFORMATION
  Report Type: Spontaneous
  Country: NL (occurrence: NL)
  Receive Date: 20240515
  Receipt Date: 20240607
  Transmission Date: 20240716
  Serious: Yes (Hospitalization, Other)
  Sender: FDA-Public Use
  Company Number: NL-JNJFOC-20240486044

PATIENT
  Age: 84 Year
  Sex: Female
  Weight: 54 kg

DRUGS (10)
  1. LORAZEPAM [Suspect]
     Active Substance: LORAZEPAM
     Indication: Hypertension
     Dosage: 1 MG ZN, 2DD1
     Route: 065
  2. METOPROLOL [Suspect]
     Active Substance: METOPROLOL
     Indication: Hypertension
     Dosage: 1DD1
     Route: 065
  3. LOSARTAN [Suspect]
     Active Substance: LOSARTAN
     Indication: Hypertension
     Dosage: 1DD1
     Route: 065
  4. RISPERDAL [Suspect]
     Active Substance: RISPERIDONE
     Indication: Psychiatric decompensation
     Route: 065
  5. RISPERDAL [Suspect]
     Active Substance: RISPERIDONE
     Dosage: 1DD1
  6. EUTHYROX [Suspect]
     Active Substance: LEVOTHYROXINE SODIUM
     Indication: Hypothyroidism
     Dosage: 1DD1
     Route: 065
  7. AMLODIPINE [Suspect]
     Active Substance: AMLODIPINE BESYLATE
     Indication: Hypertension
     Route: 065
  8. LITHIUM [Suspect]
     Active Substance: LITHIUM
     Indication: Psychiatric decompensation
     Dosage: 1DD1
     Route: 065
  9. LITHIUM [Suspect]
     Active Substance: LITHIUM
  10. CITALOPRAM [Suspect]
     Active Substance: CITALOPRAM\CITALOPRAM HYDROBROMIDE
     Indication: Dementia
     Dosage: ZN 1MG-  20 MG 1DD1
     Route: 065

REACTIONS (1)
  - Neuroleptic malignant syndrome [Recovering/Resolving]
